FAERS Safety Report 22606568 (Version 2)
Quarter: 2023Q2

REPORT INFORMATION
  Report Type: Spontaneous
  Country: US (occurrence: US)
  Receive Date: 20230615
  Receipt Date: 20230626
  Transmission Date: 20230721
  Serious: Yes (Hospitalization)
  Sender: FDA-Public Use
  Company Number: US-TEVA-2023-US-2895892

PATIENT
  Age: 39 Year
  Sex: Female

DRUGS (8)
  1. CLONIDINE [Interacting]
     Active Substance: CLONIDINE
     Indication: Anxiety
     Dosage: .3 MILLIGRAM DAILY; 0.1 MG THREE TIMES DAILY
     Route: 065
  2. BUPROPION HYDROCHLORIDE [Interacting]
     Active Substance: BUPROPION HYDROCHLORIDE
     Indication: Product used for unknown indication
     Dosage: 450 MILLIGRAM DAILY; ONCE A DAY
     Route: 065
  3. DESVENLAFAXINE [Interacting]
     Active Substance: DESVENLAFAXINE
     Indication: Product used for unknown indication
     Dosage: 200 MILLIGRAM DAILY; ONCE A DAY
     Route: 065
  4. YOHIMBINE [Interacting]
     Active Substance: YOHIMBINE
     Indication: Disturbance in sexual arousal
     Dosage: BIOXGENIC NATURE^S DESIRE
     Route: 048
  5. BUPRENORPHINE HYDROCHLORIDE\NALOXONE [Concomitant]
     Active Substance: BUPRENORPHINE HYDROCHLORIDE\NALOXONE
     Indication: Product used for unknown indication
     Dosage: 1.5 FILMS
     Route: 065
  6. LISDEXAMFETAMINE [Concomitant]
     Active Substance: LISDEXAMFETAMINE
     Indication: Product used for unknown indication
     Dosage: 100 MILLIGRAM DAILY; 60 MG EVERY MORNING AND 40 MG AT NOON
     Route: 065
  7. TRAZODONE [Concomitant]
     Active Substance: TRAZODONE HYDROCHLORIDE
     Indication: Product used for unknown indication
     Dosage: 100 MILLIGRAM DAILY; ONCE A DAY;NIGHTLY
     Route: 065
  8. LEVONORGESTREL [Concomitant]
     Active Substance: LEVONORGESTREL
     Indication: Product used for unknown indication
     Dosage: IUD
     Route: 065

REACTIONS (4)
  - Adrenergic syndrome [Unknown]
  - Haemorrhage intracranial [Unknown]
  - Hypertensive emergency [Unknown]
  - Drug interaction [Unknown]
